FAERS Safety Report 23660253 (Version 1)
Quarter: 2024Q1

REPORT INFORMATION
  Report Type: Spontaneous
  Country: CN (occurrence: CN)
  Receive Date: 20240321
  Receipt Date: 20240321
  Transmission Date: 20240410
  Serious: Yes (Hospitalization, Other)
  Sender: FDA-Public Use
  Company Number: CN-009507513-2403CHN005046

PATIENT
  Age: 41 Year
  Sex: Male
  Weight: 72 kg

DRUGS (7)
  1. CILASTATIN SODIUM\IMIPENEM [Suspect]
     Active Substance: CILASTATIN SODIUM\IMIPENEM
     Indication: Abdominal infection
     Dosage: 0.5 G, QD, IV DRIP
     Route: 041
     Dates: start: 20240131, end: 20240201
  2. CILASTATIN SODIUM\IMIPENEM [Suspect]
     Active Substance: CILASTATIN SODIUM\IMIPENEM
     Dosage: 0.5 G, Q8H, IV DRIP
     Route: 041
     Dates: start: 20240202, end: 20240203
  3. CILASTATIN SODIUM\IMIPENEM [Suspect]
     Active Substance: CILASTATIN SODIUM\IMIPENEM
     Dosage: 1 G, Q8H, IV DRIP
     Route: 041
     Dates: start: 20240204, end: 20240208
  4. CILASTATIN SODIUM\IMIPENEM [Suspect]
     Active Substance: CILASTATIN SODIUM\IMIPENEM
     Dosage: 1 G, Q8H, IV DRIP
     Route: 041
     Dates: start: 20240214, end: 20240220
  5. ERTAPENEM SODIUM [Suspect]
     Active Substance: ERTAPENEM SODIUM
     Dosage: 1 G, QD IV DRIP
     Route: 041
     Dates: start: 20240209, end: 20240213
  6. CEFOPERAZONE SODIUM\SULBACTAM SODIUM [Concomitant]
     Active Substance: CEFOPERAZONE SODIUM\SULBACTAM SODIUM
     Dosage: UNK
     Dates: start: 20240128, end: 20240130
  7. MORPONIDAZOLE [Concomitant]
     Active Substance: MORPONIDAZOLE
     Dosage: UNK
     Dates: start: 20240128, end: 20240130

REACTIONS (9)
  - Temperature intolerance [Unknown]
  - Chills [Unknown]
  - Abdominal infection [Unknown]
  - Pyrexia [Unknown]
  - Clostridium test positive [Unknown]
  - Diarrhoea [Recovering/Resolving]
  - Faeces discoloured [Unknown]
  - Tuberculin test positive [Unknown]
  - Inappropriate schedule of product administration [Unknown]

NARRATIVE: CASE EVENT DATE: 20240201
